FAERS Safety Report 4836349-8 (Version None)
Quarter: 2005Q4

REPORT INFORMATION
  Report Type: 
  Country: None (occurrence: None)
  Receive Date: 20051123
  Receipt Date: 20050916
  Transmission Date: 20060501
  Serious: Yes (Death, Hospitalization)
  Sender: FDA-Public Use
  Company Number: AR-ROCHE-418023

PATIENT
  Age: 57 Year
  Sex: Female

DRUGS (2)
  1. CAPECITABINE [Suspect]
     Indication: BREAST CANCER METASTATIC
     Dosage: FOR 2 WEEKS OF A 3-WEEK CYCLE.
     Route: 048
     Dates: start: 20050812, end: 20050825
  2. IBUPROFEN [Concomitant]
     Indication: CANCER PAIN
     Route: 048
     Dates: start: 20050715, end: 20050903

REACTIONS (9)
  - CYSTITIS ESCHERICHIA [None]
  - DIARRHOEA [None]
  - DISEASE PROGRESSION [None]
  - GASTROINTESTINAL HAEMORRHAGE [None]
  - HAEMOGLOBIN DECREASED [None]
  - INFECTION [None]
  - PLATELET COUNT DECREASED [None]
  - PLEURAL EFFUSION [None]
  - SEPSIS [None]
